FAERS Safety Report 8349009-6 (Version None)
Quarter: 2012Q2

REPORT INFORMATION
  Report Type: 
  Country: None (occurrence: None)
  Receive Date: 20120510
  Receipt Date: 20120503
  Transmission Date: 20120825
  Serious: Yes (Other)
  Sender: FDA-Public Use
  Company Number: US-BAYER-2012-043599

PATIENT
  Age: 67 Year
  Sex: Male

DRUGS (2)
  1. GADAVIST [Suspect]
     Indication: NUCLEAR MAGNETIC RESONANCE IMAGING BRAIN
     Dosage: 9.5 ML, ONCE
     Dates: start: 20120503, end: 20120503
  2. GADAVIST [Suspect]
     Indication: DEAFNESS

REACTIONS (6)
  - ERYTHEMA [None]
  - NAUSEA [None]
  - VOMITING [None]
  - DYSPNOEA [None]
  - THROAT TIGHTNESS [None]
  - URTICARIA [None]
